FAERS Safety Report 16627898 (Version 2)
Quarter: 2019Q3

REPORT INFORMATION
  Report Type: Spontaneous
  Country: GB (occurrence: GB)
  Receive Date: 20190724
  Receipt Date: 20190802
  Transmission Date: 20191004
  Serious: Yes (Other)
  Sender: FDA-Public Use
  Company Number: GB-MYLANLABS-2019M1068187

PATIENT
  Sex: Male

DRUGS (10)
  1. DIHYDROCODEINE MYLAN [Suspect]
     Active Substance: DIHYDROCODEINE
     Indication: PAIN
     Dosage: TWO TO BE TAKEN FOUR TIMES A DAY IF REQUIRED.
  2. FERROUS FUMARATE [Suspect]
     Active Substance: FERROUS FUMARATE
     Dosage: MORNING AND NIGHT
  3. OLANZAPINE. [Suspect]
     Active Substance: OLANZAPINE
     Indication: PRODUCT USED FOR UNKNOWN INDICATION
     Dosage: 5 MILLIGRAM, QD
  4. FOLIC ACID. [Suspect]
     Active Substance: FOLIC ACID
     Indication: FOLATE DEFICIENCY
     Dosage: MORNING
  5. AZATHIOPRINE. [Suspect]
     Active Substance: AZATHIOPRINE
     Indication: COLITIS
     Dosage: WITH OR JUST AFTER FOOD
  6. MIRTAZAPINE. [Suspect]
     Active Substance: MIRTAZAPINE
     Indication: PRODUCT USED FOR UNKNOWN INDICATION
     Dosage: NIGHT
  7. DIHYDROCODEINE MYLAN [Suspect]
     Active Substance: DIHYDROCODEINE
     Dosage: FOUR TIMES DAILY. WITH OR JUST AFTER FOOD/MEAL
  8. FERROUS FUMARATE [Suspect]
     Active Substance: FERROUS FUMARATE
     Indication: ANAEMIA
     Dosage: MORNING AND NIGHT
  9. ESCITALOPRAM [Suspect]
     Active Substance: ESCITALOPRAM OXALATE
     Indication: PRODUCT USED FOR UNKNOWN INDICATION
     Dosage: MORNING
  10. AZATHIOPRINE. [Suspect]
     Active Substance: AZATHIOPRINE
     Dosage: MORNING, LUNCH AND TEA TIME (WITH OR JUST AFTER FOOD/MEAL)

REACTIONS (1)
  - Seizure [Unknown]
